FAERS Safety Report 4762600-9 (Version None)
Quarter: 2005Q3

REPORT INFORMATION
  Report Type: 
  Country: None (occurrence: None)
  Receive Date: 20050907
  Receipt Date: 20050831
  Transmission Date: 20060218
  Serious: Yes (Other)
  Sender: FDA-Public Use
  Company Number: US-GLAXOSMITHKLINE-A0572555A

PATIENT
  Sex: Female

DRUGS (5)
  1. ADVAIR DISKUS 100/50 [Suspect]
     Indication: ASTHMA
     Dosage: 1PUFF TWICE PER DAY
     Route: 055
     Dates: start: 20030101
  2. CLARITIN [Concomitant]
  3. ESTRADIOL [Concomitant]
  4. NEXIUM [Concomitant]
  5. THYROID TAB [Concomitant]

REACTIONS (2)
  - ASTHMA [None]
  - PHARMACEUTICAL PRODUCT COMPLAINT [None]
